FAERS Safety Report 10079217 (Version 1)
Quarter: 2014Q2

REPORT INFORMATION
  Report Type: Spontaneous
  Country: PK (occurrence: PK)
  Receive Date: 20140415
  Receipt Date: 20140415
  Transmission Date: 20141212
  Serious: Yes (Hospitalization, Disabling, Other)
  Sender: FDA-Public Use
  Company Number: PK-WATSON-2014-07070

PATIENT
  Age: 41 Year
  Sex: Male

DRUGS (1)
  1. METRONIDAZOLE (UNKNOWN) [Suspect]
     Indication: DIARRHOEA
     Dosage: 1200 MG, DAILY
     Route: 065

REACTIONS (1)
  - Toxic encephalopathy [Recovering/Resolving]
